FAERS Safety Report 17055299 (Version 1)
Quarter: 2019Q4

REPORT INFORMATION
  Report Type: Report from Study
  Country: FR (occurrence: FR)
  Receive Date: 20191120
  Receipt Date: 20191120
  Transmission Date: 20200122
  Serious: Yes (Death, Hospitalization, Other)
  Sender: FDA-Public Use
  Company Number: FR-JAZZ-2019-FR-006699

PATIENT

DRUGS (6)
  1. AMOXICILLIN. [Suspect]
     Active Substance: AMOXICILLIN
     Indication: INFECTION PROPHYLAXIS
     Dosage: 500 MG/DAY
     Route: 065
     Dates: start: 20181111, end: 20181221
  2. TRIMETHOPRIME, SULFAMETHOXAZOLE [Suspect]
     Active Substance: SULFAMETHOXAZOLE\TRIMETHOPRIM
     Indication: INFECTION PROPHYLAXIS
     Dosage: 2.4 G/DAY
     Route: 065
     Dates: start: 20180112, end: 20181126
  3. IBRUTINIB [Suspect]
     Active Substance: IBRUTINIB
     Indication: ACUTE LYMPHOCYTIC LEUKAEMIA
     Dosage: 420 MG/DAY
     Route: 065
     Dates: start: 20181106, end: 20181119
  4. DEFITELIO [Suspect]
     Active Substance: DEFIBROTIDE SODIUM
     Indication: PROPHYLAXIS
     Dosage: 25 MG/KG/DAY
     Route: 042
     Dates: start: 20180109, end: 20180110
  5. VALACICLOVIR [Suspect]
     Active Substance: VALACYCLOVIR HYDROCHLORIDE
     Indication: PROPHYLAXIS
     Dosage: 1 G/DAY
     Route: 065
     Dates: start: 20180112, end: 20180126
  6. NEFOPAM HYDROCHLORIDE [Suspect]
     Active Substance: NEFOPAM HYDROCHLORIDE
     Indication: PAIN
     Dosage: 120 MG/DAY
     Route: 065
     Dates: start: 20180220, end: 20180326

REACTIONS (5)
  - Haemoptysis [Recovered/Resolved]
  - Intentional product use issue [Unknown]
  - Septic shock [Recovered/Resolved]
  - Acute lymphocytic leukaemia recurrent [Fatal]
  - Enteritis infectious [Unknown]

NARRATIVE: CASE EVENT DATE: 20180109
